FAERS Safety Report 5359750-5 (Version None)
Quarter: 2007Q2

REPORT INFORMATION
  Report Type: 
  Country: None (occurrence: None)
  Receive Date: 20070615
  Receipt Date: 20070613
  Transmission Date: 20071010
  Serious: Yes (Other)
  Sender: FDA-Public Use
  Company Number: FR-PFIZER INC-2007047833

PATIENT
  Sex: Female

DRUGS (3)
  1. CHAMPIX [Suspect]
     Indication: SMOKING CESSATION THERAPY
  2. GLUCOVANCE [Concomitant]
     Indication: DIABETES MELLITUS
  3. LIPANTHYL [Concomitant]

REACTIONS (1)
  - BLOOD GLUCOSE INCREASED [None]
